FAERS Safety Report 8569386-0 (Version None)
Quarter: 2012Q3

REPORT INFORMATION
  Report Type: 
  Country: None (occurrence: None)
  Receive Date: 20120803
  Receipt Date: 20120221
  Transmission Date: 20120928
  Serious: No
  Sender: FDA-Public Use
  Company Number: US-ABBOTT-12P-163-0906855-00

PATIENT
  Sex: Male
  Weight: 98.518 kg

DRUGS (7)
  1. TRAMAZAN C [Concomitant]
     Indication: PRODUCT USED FOR UNKNOWN INDICATION
  2. NIASPAN [Suspect]
     Indication: BLOOD CHOLESTEROL
  3. ALLOPURINOL [Concomitant]
     Indication: RENAL DISORDER
  4. FISH OIL [Concomitant]
     Indication: PRODUCT USED FOR UNKNOWN INDICATION
  5. TIMOLOL MALEATE [Concomitant]
     Indication: GLAUCOMA
  6. CYMBACORT [Concomitant]
     Indication: PRODUCT USED FOR UNKNOWN INDICATION
  7. VITAMIN D [Concomitant]
     Indication: PRODUCT USED FOR UNKNOWN INDICATION

REACTIONS (2)
  - RASH [None]
  - HOT FLUSH [None]
